FAERS Safety Report 23936194 (Version 1)
Quarter: 2024Q2

REPORT INFORMATION
  Report Type: Spontaneous
  Country: ES (occurrence: ES)
  Receive Date: 20240604
  Receipt Date: 20240604
  Transmission Date: 20240716
  Serious: Yes (Other)
  Sender: FDA-Public Use
  Company Number: None

PATIENT
  Age: 35 Year
  Sex: Female

DRUGS (4)
  1. ENOXAPARIN SODIUM [Suspect]
     Active Substance: ENOXAPARIN SODIUM
     Indication: Thrombosis prophylaxis
     Dosage: 60 MG, QD
     Route: 058
     Dates: start: 20240410, end: 20240426
  2. FOLIC ACID [Concomitant]
     Active Substance: FOLIC ACID
     Dosage: 5 MG, QD
     Route: 048
     Dates: start: 20231228
  3. CHOLECALCIFEROL [Concomitant]
     Active Substance: CHOLECALCIFEROL
     Dosage: 6 GBQ, QD
     Route: 048
     Dates: start: 20231228
  4. YODUK [Concomitant]
     Dosage: 200 UG, QD
     Route: 048
     Dates: start: 20231228

REACTIONS (1)
  - Injection site vesicles [Recovered/Resolved]

NARRATIVE: CASE EVENT DATE: 20240427
